FAERS Safety Report 23771365 (Version 1)
Quarter: 2024Q2

REPORT INFORMATION
  Report Type: Spontaneous
  Country: US (occurrence: US)
  Receive Date: 20240423
  Receipt Date: 20240423
  Transmission Date: 20240716
  Serious: No
  Sender: FDA-Public Use
  Company Number: US-HALEON-2167320

PATIENT
  Age: 29 Year
  Sex: Female

DRUGS (2)
  1. HYDROCORTISONE [Suspect]
     Active Substance: HYDROCORTISONE
     Indication: Rash
     Route: 061
  2. MUPIROCIN [Suspect]
     Active Substance: MUPIROCIN
     Route: 061

REACTIONS (2)
  - Therapeutic product effect incomplete [Unknown]
  - Treatment failure [Unknown]
